FAERS Safety Report 17359736 (Version 1)
Quarter: 2020Q1

REPORT INFORMATION
  Report Type: Spontaneous
  Country: IR (occurrence: IR)
  Receive Date: 20200203
  Receipt Date: 20200203
  Transmission Date: 20200409
  Serious: Yes (Other)
  Sender: FDA-Public Use
  Company Number: IR-AMGEN-IRNSP2020015893

PATIENT
  Age: 30 Year
  Sex: Female

DRUGS (1)
  1. NEUPOGEN [Suspect]
     Active Substance: FILGRASTIM
     Indication: INFERTILITY
     Dosage: UNK
     Route: 065

REACTIONS (2)
  - Abortion missed [Recovered/Resolved]
  - Maternal exposure before pregnancy [Recovered/Resolved]
